FAERS Safety Report 8116100-9 (Version None)
Quarter: 2012Q1

REPORT INFORMATION
  Report Type: 
  Country: None (occurrence: None)
  Receive Date: 20120206
  Receipt Date: 20120126
  Transmission Date: 20120608
  Serious: Yes (Hospitalization)
  Sender: FDA-Public Use
  Company Number: GB-ROCHE-1033900

PATIENT
  Sex: Female
  Weight: 69 kg

DRUGS (1)
  1. MABTHERA [Suspect]
     Indication: RHEUMATOID ARTHRITIS
     Dates: start: 20080613

REACTIONS (4)
  - RADIUS FRACTURE [None]
  - FALL [None]
  - FACIAL BONES FRACTURE [None]
  - CONTUSION [None]
